FAERS Safety Report 12177981 (Version 5)
Quarter: 2016Q3

REPORT INFORMATION
  Report Type: Spontaneous
  Country: GB (occurrence: GB)
  Receive Date: 20160314
  Receipt Date: 20160719
  Transmission Date: 20161109
  Serious: Yes (Other)
  Sender: FDA-Public Use
  Company Number: GB-JNJFOC-20160309343

PATIENT
  Age: 84 Year
  Sex: Female
  Weight: 68.94 kg

DRUGS (8)
  1. XARELTO [Suspect]
     Active Substance: RIVAROXABAN
     Indication: DEEP VEIN THROMBOSIS
     Route: 048
     Dates: start: 20160106
  2. SIMVASTATIN. [Concomitant]
     Active Substance: SIMVASTATIN
     Indication: DYSLIPIDAEMIA
     Route: 065
     Dates: start: 2009
  3. LOSARTAN. [Concomitant]
     Active Substance: LOSARTAN
     Route: 065
     Dates: end: 20160101
  4. XARELTO [Suspect]
     Active Substance: RIVAROXABAN
     Indication: DEEP VEIN THROMBOSIS
     Route: 048
     Dates: start: 20160127
  5. XARELTO [Suspect]
     Active Substance: RIVAROXABAN
     Indication: EMBOLISM VENOUS
     Route: 048
     Dates: start: 20160127
  6. XARELTO [Suspect]
     Active Substance: RIVAROXABAN
     Indication: PULMONARY EMBOLISM
     Route: 048
     Dates: start: 20160106
  7. XARELTO [Suspect]
     Active Substance: RIVAROXABAN
     Indication: PULMONARY EMBOLISM
     Route: 048
     Dates: start: 20160127
  8. XARELTO [Suspect]
     Active Substance: RIVAROXABAN
     Indication: EMBOLISM VENOUS
     Route: 048
     Dates: start: 20160106

REACTIONS (5)
  - Nail growth abnormal [Unknown]
  - Hirsutism [Not Recovered/Not Resolved]
  - Alopecia [Unknown]
  - Thirst [Recovered/Resolved]
  - Dysgeusia [Recovered/Resolved]

NARRATIVE: CASE EVENT DATE: 20160214
